FAERS Safety Report 11182913 (Version 2)
Quarter: 2015Q3

REPORT INFORMATION
  Report Type: Spontaneous
  Country: US (occurrence: US)
  Receive Date: 20150611
  Receipt Date: 20150720
  Transmission Date: 20151125
  Serious: Yes (Other)
  Sender: FDA-Public Use
  Company Number: US-ROXANE LABORATORIES, INC.-2015-RO-00965RO

PATIENT
  Sex: Female

DRUGS (1)
  1. METHOTREXATE [Suspect]
     Active Substance: METHOTREXATE
     Indication: RHEUMATOID ARTHRITIS
     Route: 065

REACTIONS (9)
  - Nasopharyngitis [Unknown]
  - Product quality issue [Unknown]
  - Diarrhoea [Unknown]
  - Pollakiuria [Unknown]
  - Chills [Unknown]
  - Drug ineffective [Unknown]
  - Dyspnoea [Unknown]
  - Headache [Unknown]
  - Cough [Unknown]
